FAERS Safety Report 4906198-0 (Version None)
Quarter: 2006Q1

REPORT INFORMATION
  Report Type: 
  Country: None (occurrence: None)
  Receive Date: 20060209
  Receipt Date: 20060131
  Transmission Date: 20060701
  Serious: Yes (Hospitalization, Other)
  Sender: FDA-Public Use
  Company Number: PHBS2006NO01772

PATIENT
  Sex: Female

DRUGS (1)
  1. SANDIMMUNE [Suspect]
     Indication: PSORIASIS
     Dosage: 50 MG, BID

REACTIONS (4)
  - HERPES ZOSTER [None]
  - PARKINSONISM [None]
  - POLYNEUROPATHY [None]
  - TREMOR [None]
